FAERS Safety Report 10459393 (Version 3)
Quarter: 2015Q1

REPORT INFORMATION
  Report Type: Spontaneous
  Country: US (occurrence: None)
  Receive Date: 20140915
  Receipt Date: 20150120
  Transmission Date: 20150720
  Serious: Yes (Other)
  Sender: FDA-Public Use
  Company Number: 2014-20311

PATIENT
  Age: 79 Year
  Sex: Female

DRUGS (1)
  1. EYLEA [Suspect]
     Active Substance: AFLIBERCEPT
     Indication: MACULAR DEGENERATION
     Dosage: SINGLE
     Route: 031
     Dates: start: 20140701, end: 20140701

REACTIONS (5)
  - Oral pain [None]
  - Glossodynia [None]
  - Tongue injury [None]
  - Weight decreased [None]
  - Aphagia [None]

NARRATIVE: CASE EVENT DATE: 20140702
